FAERS Safety Report 10024573 (Version 2)
Quarter: 2014Q2

REPORT INFORMATION
  Report Type: Spontaneous
  Country: JP (occurrence: JP)
  Receive Date: 20140320
  Receipt Date: 20140526
  Transmission Date: 20141212
  Serious: Yes (Other)
  Sender: FDA-Public Use
  Company Number: PHHY2014JP033256

PATIENT
  Sex: Male

DRUGS (1)
  1. NEORAL [Suspect]
     Indication: NEPHROTIC SYNDROME
     Dosage: 150 MG, 75 MG IN THE MORNING AND 75 MG IN THE EARLY EVENING
     Route: 048

REACTIONS (1)
  - Gastrointestinal haemorrhage [Unknown]
